FAERS Safety Report 19537541 (Version 1)
Quarter: 2021Q3

REPORT INFORMATION
  Report Type: Spontaneous
  Country: US (occurrence: US)
  Receive Date: 20210713
  Receipt Date: 20210713
  Transmission Date: 20211014
  Serious: Yes (Hospitalization)
  Sender: FDA-Public Use
  Company Number: None

PATIENT
  Sex: Male

DRUGS (9)
  1. GLIMEPIRIDE. [Concomitant]
     Active Substance: GLIMEPIRIDE
  2. RANEXA [Concomitant]
     Active Substance: RANOLAZINE
  3. HUMALOG [Concomitant]
     Active Substance: INSULIN LISPRO
  4. INLYTA [Suspect]
     Active Substance: AXITINIB
     Indication: RENAL CANCER
     Route: 048
     Dates: start: 20210220
  5. FISH OIL [Concomitant]
     Active Substance: FISH OIL
  6. LULEIN [Concomitant]
  7. IRON [Concomitant]
     Active Substance: IRON
  8. IRBESANTAN [Concomitant]
  9. NITROGLYCERIN. [Concomitant]
     Active Substance: NITROGLYCERIN

REACTIONS (2)
  - Drug ineffective [None]
  - Gastrointestinal haemorrhage [None]
